FAERS Safety Report 6715920-2 (Version None)
Quarter: 2010Q2

REPORT INFORMATION
  Report Type: 
  Country: None (occurrence: None)
  Receive Date: 20100507
  Receipt Date: 20100430
  Transmission Date: 20101027
  Serious: Yes (Hospitalization)
  Sender: FDA-Public Use
  Company Number: PHHO2010NZ02021

PATIENT
  Sex: Female

DRUGS (2)
  1. CERTICAN [Suspect]
     Indication: RENAL TRANSPLANT
     Dosage: 0.75 MG, BID
     Route: 048
     Dates: start: 20080207
  2. CEFTRIAXONE [Concomitant]

REACTIONS (7)
  - ABDOMINAL DISCOMFORT [None]
  - ABDOMINAL PAIN [None]
  - COMPLICATIONS OF TRANSPLANTED KIDNEY [None]
  - CYST DRAINAGE [None]
  - DRAIN REMOVAL [None]
  - LYMPHOCELE [None]
  - SCLEROTHERAPY [None]
